FAERS Safety Report 21105922 (Version 3)
Quarter: 2022Q3

REPORT INFORMATION
  Report Type: Report from Study
  Country: US (occurrence: US)
  Receive Date: 20220720
  Receipt Date: 20220825
  Transmission Date: 20221027
  Serious: No
  Sender: FDA-Public Use
  Company Number: US-KYOWAKIRIN-2022BKK011259

PATIENT

DRUGS (2)
  1. CRYSVITA [Suspect]
     Active Substance: BUROSUMAB-TWZA
     Indication: Hereditary hypophosphataemic rickets
     Dosage: 50 UNK, 1X/4 WEEKS 50 MG(50 MG (1 X 20 MG AND 1 X 30 MG) UNDER THE SKIN )
     Route: 058
  2. CRYSVITA [Suspect]
     Active Substance: BUROSUMAB-TWZA
     Indication: Hereditary hypophosphataemic rickets
     Dosage: 50 MG, 1X/4 WEEKS(50 MG (1 X 20 MG AND 1 X 30 MG) UNDER THE SKIN)
     Route: 058

REACTIONS (3)
  - Seasonal allergy [Unknown]
  - Inappropriate schedule of product administration [Unknown]
  - Knee operation [Unknown]
